FAERS Safety Report 19760826 (Version 1)
Quarter: 2021Q3

REPORT INFORMATION
  Report Type: Spontaneous
  Country: US (occurrence: US)
  Receive Date: 20210828
  Receipt Date: 20210828
  Transmission Date: 20211014
  Serious: Yes (Other)
  Sender: FDA-Public Use
  Company Number: None

PATIENT
  Age: 61 Year
  Sex: Female
  Weight: 69.3 kg

DRUGS (16)
  1. AMITRIPTYLINE [Concomitant]
     Active Substance: AMITRIPTYLINE
     Dates: start: 20120618, end: 20140702
  2. BACLOFEN. [Concomitant]
     Active Substance: BACLOFEN
     Dates: start: 20150417
  3. BUPROPION XL [Concomitant]
     Active Substance: BUPROPION
     Dates: start: 20190208, end: 20190826
  4. FLUTICASONE. [Concomitant]
     Active Substance: FLUTICASONE
     Dates: start: 20140325
  5. ASPIRIN. [Concomitant]
     Active Substance: ASPIRIN
     Dates: start: 20130327, end: 20200715
  6. PREGABALIN. [Concomitant]
     Active Substance: PREGABALIN
     Dates: start: 20141104
  7. BUDESONIDE?FORMOTEROL INHALER [Concomitant]
     Dates: start: 20140702
  8. CLOPIDOGREL [Concomitant]
     Active Substance: CLOPIDOGREL BISULFATE
     Dates: start: 20130316
  9. SERTRALINE [Concomitant]
     Active Substance: SERTRALINE HYDROCHLORIDE
     Dates: start: 20140327
  10. REGEN?COV [Suspect]
     Active Substance: CASIRIVIMAB\IMDEVIMAB
     Indication: COVID-19
     Dosage: ?          OTHER FREQUENCY:ONCE;?
     Route: 041
     Dates: start: 20210819, end: 20210819
  11. AMLODIPINE [Concomitant]
     Active Substance: AMLODIPINE BESYLATE
     Dates: start: 20140322
  12. CETIRIZINE [Concomitant]
     Active Substance: CETIRIZINE HYDROCHLORIDE
     Dates: start: 20210621
  13. CHLORTHALIDONE. [Concomitant]
     Active Substance: CHLORTHALIDONE
     Dates: start: 20141023
  14. ACLIDINIUM BROMIDE. [Concomitant]
     Active Substance: ACLIDINIUM BROMIDE
     Dates: start: 20160216, end: 20170208
  15. ALBUTEROL HFA [Concomitant]
     Active Substance: ALBUTEROL SULFATE
     Dates: start: 20090901
  16. ATORVASTATIN [Concomitant]
     Active Substance: ATORVASTATIN
     Dates: start: 20130316

REACTIONS (5)
  - Nasal congestion [None]
  - Dyspnoea [None]
  - Cough [None]
  - Hypokalaemia [None]
  - Wheezing [None]

NARRATIVE: CASE EVENT DATE: 20210820
